FAERS Safety Report 9913254 (Version 3)
Quarter: 2014Q3

REPORT INFORMATION
  Report Type: Report from Study
  Country: CA (occurrence: CA)
  Receive Date: 20140220
  Receipt Date: 20140813
  Transmission Date: 20150326
  Serious: Yes (Hospitalization)
  Sender: FDA-Public Use
  Company Number: CA-BRISTOL-MYERS SQUIBB COMPANY-20191367

PATIENT
  Age: 67 Year
  Sex: Female

DRUGS (7)
  1. FOLIC ACID. [Concomitant]
     Active Substance: FOLIC ACID
  2. CELEBREX [Concomitant]
     Active Substance: CELECOXIB
  3. ATIVAN [Concomitant]
     Active Substance: LORAZEPAM
  4. SULFASALAZINE. [Concomitant]
     Active Substance: SULFASALAZINE
  5. ORENCIA [Suspect]
     Active Substance: ABATACEPT
     Indication: RHEUMATOID ARTHRITIS
     Dosage: EXP DATE JUL2016
     Route: 042
     Dates: start: 20131106, end: 20140528
  6. PANTOPRAZOLE [Concomitant]
     Active Substance: PANTOPRAZOLE SODIUM
  7. CALCIUM [Concomitant]
     Active Substance: CALCIUM

REACTIONS (5)
  - Drug ineffective [Unknown]
  - Asthenia [Unknown]
  - Depression [Unknown]
  - Night sweats [Unknown]
  - Blood pressure decreased [Unknown]
